FAERS Safety Report 25778128 (Version 1)
Quarter: 2025Q3

REPORT INFORMATION
  Report Type: Spontaneous
  Country: EU (occurrence: EU)
  Receive Date: 20250909
  Receipt Date: 20250909
  Transmission Date: 20251020
  Serious: Yes (Life-Threatening, Other)
  Sender: AUROBINDO
  Company Number: EU-MLMSERVICE-20190110-1563554-1

PATIENT
  Age: 63 Year
  Sex: Female

DRUGS (15)
  1. EXEMESTANE [Suspect]
     Active Substance: EXEMESTANE
     Indication: Metastases to peritoneum
     Route: 065
  2. EXEMESTANE [Suspect]
     Active Substance: EXEMESTANE
     Indication: Metastases to bone
  3. EXEMESTANE [Suspect]
     Active Substance: EXEMESTANE
     Indication: Metastases to spleen
  4. EXEMESTANE [Suspect]
     Active Substance: EXEMESTANE
     Indication: Metastases to skin
  5. EXEMESTANE [Suspect]
     Active Substance: EXEMESTANE
     Indication: Metastases to central nervous system
  6. AFINITOR [Suspect]
     Active Substance: EVEROLIMUS
     Indication: Metastases to skin
     Route: 065
  7. AFINITOR [Suspect]
     Active Substance: EVEROLIMUS
     Indication: Metastases to bone
  8. AFINITOR [Suspect]
     Active Substance: EVEROLIMUS
     Indication: Metastases to peritoneum
  9. AFINITOR [Suspect]
     Active Substance: EVEROLIMUS
     Indication: Metastases to central nervous system
  10. AFINITOR [Suspect]
     Active Substance: EVEROLIMUS
     Indication: Metastases to spleen
  11. NAVELBINE [Suspect]
     Active Substance: VINORELBINE TARTRATE
     Indication: Metastases to central nervous system
     Route: 065
  12. NAVELBINE [Suspect]
     Active Substance: VINORELBINE TARTRATE
     Indication: Metastases to skin
  13. NAVELBINE [Suspect]
     Active Substance: VINORELBINE TARTRATE
     Indication: Metastases to spleen
  14. NAVELBINE [Suspect]
     Active Substance: VINORELBINE TARTRATE
     Indication: Metastases to peritoneum
  15. NAVELBINE [Suspect]
     Active Substance: VINORELBINE TARTRATE
     Indication: Metastases to bone

REACTIONS (3)
  - Dyspnoea [Unknown]
  - Pleural effusion [Unknown]
  - Drug ineffective [Unknown]
